FAERS Safety Report 8015469-3 (Version None)
Quarter: 2011Q4

REPORT INFORMATION
  Report Type: 
  Country: None (occurrence: None)
  Receive Date: 20111227
  Receipt Date: 20111227
  Transmission Date: 20120403
  Serious: Yes (Hospitalization)
  Sender: FDA-Public Use
  Company Number: None

PATIENT
  Age: 67 Year
  Sex: Male
  Weight: 89.2 kg

DRUGS (1)
  1. RIFAMPICIN [Suspect]
     Indication: MULTIPLE SYSTEM ATROPHY
     Dosage: 300 MG BID
     Dates: start: 20110721, end: 20110825

REACTIONS (4)
  - HYPERHIDROSIS [None]
  - LOSS OF CONSCIOUSNESS [None]
  - BODY TEMPERATURE INCREASED [None]
  - ASTHENIA [None]
